FAERS Safety Report 4627244-8 (Version None)
Quarter: 2005Q1

REPORT INFORMATION
  Report Type: 
  Country: None (occurrence: None)
  Receive Date: 20050330
  Receipt Date: 20050315
  Transmission Date: 20050727
  Serious: Yes (Hospitalization, Other)
  Sender: FDA-Public Use
  Company Number: 200510988BCC

PATIENT
  Sex: Male
  Weight: 2.268 kg

DRUGS (3)
  1. ALEVE [Suspect]
     Dosage: NI, UNK, TRANSPLACENTAL
     Route: 064
  2. HEROIN [Concomitant]
  3. METHADONE HCL [Concomitant]

REACTIONS (6)
  - CAESAREAN SECTION [None]
  - DRUG DEPENDENCE [None]
  - DRUG EXPOSURE DURING PREGNANCY [None]
  - DRUG SCREEN POSITIVE [None]
  - DRUG WITHDRAWAL SYNDROME NEONATAL [None]
  - NEONATAL DISORDER [None]
